FAERS Safety Report 5800663-X (Version None)
Quarter: 2008Q3

REPORT INFORMATION
  Report Type: 
  Country: None (occurrence: None)
  Receive Date: 20080703
  Receipt Date: 20080623
  Transmission Date: 20090109
  Serious: Yes (Other)
  Sender: FDA-Public Use
  Company Number: CN-ROCHE-572424

PATIENT
  Sex: Female
  Weight: 78 kg

DRUGS (1)
  1. XELODA [Suspect]
     Route: 048
     Dates: start: 20080220

REACTIONS (2)
  - DRUG INEFFECTIVE [None]
  - NEOPLASM PROGRESSION [None]
